FAERS Safety Report 21491983 (Version 1)
Quarter: 2022Q4

REPORT INFORMATION
  Report Type: Spontaneous
  Country: CN (occurrence: None)
  Receive Date: 20221021
  Receipt Date: 20221021
  Transmission Date: 20230113
  Serious: Yes (Hospitalization, Other)
  Sender: FDA-Public Use
  Company Number: 2022A348308

PATIENT
  Age: 31477 Day
  Sex: Male
  Weight: 80 kg

DRUGS (3)
  1. TICAGRELOR [Suspect]
     Active Substance: TICAGRELOR
     Indication: Arterial stenosis
     Route: 048
     Dates: start: 20220928, end: 20221007
  2. ASPIRIN [Concomitant]
     Active Substance: ASPIRIN
     Indication: Arterial stenosis
     Route: 048
     Dates: start: 20220928, end: 20221010
  3. CLOPIDOGREL [Concomitant]
     Active Substance: CLOPIDOGREL BISULFATE
     Route: 048

REACTIONS (3)
  - Haemoglobin decreased [Recovering/Resolving]
  - Haematuria [Recovering/Resolving]
  - Blood pressure decreased [Recovering/Resolving]

NARRATIVE: CASE EVENT DATE: 20221006
